FAERS Safety Report 9840857 (Version 1)
Quarter: 2013Q4

REPORT INFORMATION
  Report Type: Spontaneous
  Country: US (occurrence: None)
  Receive Date: 20131211
  Receipt Date: 20131211
  Transmission Date: 20140711
  Serious: Yes (Hospitalization)
  Sender: FDA-Public Use
  Company Number: ALL1-2012-03393

PATIENT
  Age: 24 Year
  Sex: Male
  Weight: 61.2 kg

DRUGS (1)
  1. LIALDA [Suspect]
     Indication: COLITIS ULCERATIVE
     Route: 048
     Dates: end: 201204

REACTIONS (3)
  - Colitis ulcerative [None]
  - Diarrhoea haemorrhagic [None]
  - Abdominal pain [None]
